FAERS Safety Report 4819801-0 (Version None)
Quarter: 2005Q4

REPORT INFORMATION
  Report Type: 
  Country: None (occurrence: None)
  Receive Date: 20051102
  Receipt Date: 20051018
  Transmission Date: 20060501
  Serious: Yes (Hospitalization)
  Sender: FDA-Public Use
  Company Number: 2004-00337

PATIENT
  Age: 64 Year
  Sex: Female
  Weight: 84.2 kg

DRUGS (17)
  1. VELCADE [Suspect]
     Indication: MANTLE CELL LYMPHOMA
     Dosage: 2.80 MG, INTRAVENOUS
     Route: 042
     Dates: start: 20040614, end: 20040715
  2. SYNTHROID [Concomitant]
  3. DARVON [Concomitant]
  4. AMARYL [Concomitant]
  5. LASIX [Concomitant]
  6. METRONIDAZOLE [Concomitant]
  7. PROMETHAZINE [Concomitant]
  8. MAGNESIUM OXIDE (MAGNESIUM OXIDE) [Concomitant]
  9. ZOFRAN [Concomitant]
  10. AMEND [Concomitant]
  11. PROCRIT [Concomitant]
  12. IMODIUM [Concomitant]
  13. AVANDIA [Concomitant]
  14. LIPITOR [Concomitant]
  15. VALIUM [Concomitant]
  16. SALT AND SODA [Concomitant]
  17. NYSTATIN (NYSTATIN) POWDER (EXCEPT [DPO]) [Concomitant]

REACTIONS (31)
  - ANAEMIA [None]
  - BLOOD CHLORIDE DECREASED [None]
  - BLOOD CREATININE INCREASED [None]
  - BLOOD POTASSIUM INCREASED [None]
  - BLOOD PRESSURE DIASTOLIC DECREASED [None]
  - BLOOD SODIUM DECREASED [None]
  - BLOOD UREA INCREASED [None]
  - CLOSTRIDIUM COLITIS [None]
  - DEHYDRATION [None]
  - DIABETES MELLITUS [None]
  - DIARRHOEA [None]
  - DRUG TOXICITY [None]
  - DRY MOUTH [None]
  - HAEMATOCRIT DECREASED [None]
  - HAEMOGLOBIN DECREASED [None]
  - HEART RATE INCREASED [None]
  - HYPOMAGNESAEMIA [None]
  - INJURY [None]
  - ISCHAEMIA [None]
  - LARGE INTESTINAL ULCER [None]
  - LYMPHOCYTE PERCENTAGE DECREASED [None]
  - MANTLE CELL LYMPHOMA [None]
  - MESENTERIC VEIN THROMBOSIS [None]
  - NEUTROPHIL PERCENTAGE INCREASED [None]
  - PYREXIA [None]
  - RALES [None]
  - RESPIRATORY RATE INCREASED [None]
  - SEPSIS [None]
  - SINUS TACHYCARDIA [None]
  - SOMNOLENCE [None]
  - WHITE BLOOD CELL COUNT INCREASED [None]
